FAERS Safety Report 16693666 (Version 1)
Quarter: 2019Q3

REPORT INFORMATION
  Report Type: Spontaneous
  Country: US (occurrence: US)
  Receive Date: 20190626
  Receipt Date: 20190626
  Transmission Date: 20191004
  Serious: No
  Sender: FDA-Public Use
  Company Number: None

PATIENT
  Age: 49 Year
  Sex: Female

DRUGS (1)
  1. REPATHA [Suspect]
     Active Substance: EVOLOCUMAB
     Dates: start: 20180801

REACTIONS (3)
  - Back pain [None]
  - Therapy cessation [None]
  - Rhinorrhoea [None]

NARRATIVE: CASE EVENT DATE: 20180801
